FAERS Safety Report 14221465 (Version 1)
Quarter: 2017Q4

REPORT INFORMATION
  Report Type: Report from Study
  Country: IE (occurrence: IE)
  Receive Date: 20171124
  Receipt Date: 20171124
  Transmission Date: 20180321
  Serious: Yes (Other)
  Sender: FDA-Public Use
  Company Number: IE-JNJFOC-20171127499

PATIENT
  Age: 60 Year
  Sex: Female

DRUGS (4)
  1. INEGY [Concomitant]
     Active Substance: EZETIMIBE\SIMVASTATIN
     Route: 050
  2. ELTROXIN [Concomitant]
     Active Substance: LEVOTHYROXINE
     Route: 050
  3. ARAVA [Concomitant]
     Active Substance: LEFLUNOMIDE
     Route: 050
  4. SIMPONI [Suspect]
     Active Substance: GOLIMUMAB
     Indication: PSORIATIC ARTHROPATHY
     Route: 058
     Dates: start: 20170720

REACTIONS (1)
  - Sinusitis [Not Recovered/Not Resolved]

NARRATIVE: CASE EVENT DATE: 20171119
